FAERS Safety Report 5872009-2 (Version None)
Quarter: 2008Q3

REPORT INFORMATION
  Report Type: 
  Country: None (occurrence: None)
  Receive Date: 20080902
  Receipt Date: 20080826
  Transmission Date: 20090109
  Serious: Yes (Death)
  Sender: FDA-Public Use
  Company Number: 20085079

PATIENT
  Age: 43 Year
  Sex: Female
  Weight: 54 kg

DRUGS (4)
  1. BACLOFEN [Suspect]
     Indication: MUSCLE SPASTICITY
     Dosage: 115-296 MCG, DAILY, INTRATHECAL
     Route: 037
     Dates: start: 20040217
  2. DANTRIUM [Concomitant]
  3. DIAZEPAM [Concomitant]
  4. PAXIL [Concomitant]

REACTIONS (3)
  - COMPLETED SUICIDE [None]
  - MALAISE [None]
  - TRISMUS [None]
